FAERS Safety Report 6399875-9 (Version None)
Quarter: 2009Q4

REPORT INFORMATION
  Report Type: 
  Country: None (occurrence: None)
  Receive Date: 20091014
  Receipt Date: 20091005
  Transmission Date: 20100525
  Serious: Yes (Other)
  Sender: FDA-Public Use
  Company Number: US-WATSON-2009-06373

PATIENT
  Sex: Female
  Weight: 59.864 kg

DRUGS (17)
  1. NICOTINE POLACRILEX (WATSON LABORATORIES) [Suspect]
     Indication: SMOKING CESSATION THERAPY
     Dosage: 6 PIECES, DAILY (ON AND OFF BETWEEN 2 AND 4MG)
     Route: 002
     Dates: start: 20050101
  2. NICOTINE POLACRILEX (WATSON LABORATORIES) [Suspect]
     Dosage: 6 PIECES, DAILY (ON AND OFF BETWEEN 2 AND 4MG)
     Route: 002
     Dates: start: 20050101
  3. NICOTINE POLACRILEX (WATSON LABORATORIES) [Suspect]
     Dosage: 8 PIECES DAILY
     Dates: start: 20050101
  4. NICOTINE POLACRILEX (WATSON LABORATORIES) [Suspect]
     Dosage: 6 PIECES, DAILY (ON AND OFF BETWEEN 2 AND 4MG)
     Route: 002
     Dates: start: 20050101
  5. NICOTINE POLACRILEX (WATSON LABORATORIES) [Suspect]
     Dosage: 6 PIECES, DAILY (ON AND OFF BETWEEN 2 AND 4MG)
     Route: 002
     Dates: start: 20050101
  6. NICOTINE POLACRILEX (WATSON LABORATORIES) [Suspect]
     Dosage: 8 PIECES DAILY
     Dates: start: 20050101
  7. ASPIRIN [Concomitant]
     Indication: CARDIOVASCULAR DISORDER
     Dosage: 325 MG, DAILY
     Route: 048
     Dates: start: 19900101
  8. ASPIRIN [Concomitant]
     Indication: MIGRAINE
  9. ADVAIR DISKUS 100/50 [Concomitant]
     Indication: CHRONIC OBSTRUCTIVE PULMONARY DISEASE
     Dosage: 2 PUFFS DAILY
     Route: 048
     Dates: start: 20050101
  10. THERAGRAN-M [Concomitant]
     Indication: VITAMIN SUPPLEMENTATION
     Dosage: 1 DAILY
     Route: 048
     Dates: start: 20050101
  11. CORAL CALCIUM [Concomitant]
     Indication: DRUG USE FOR UNKNOWN INDICATION
     Dosage: 2 DAILY
     Route: 048
     Dates: start: 20050101
  12. XANAX [Concomitant]
     Indication: ANXIETY
     Dosage: 0.25 1/2 TAB PRN
     Route: 065
  13. XOPENEX [Concomitant]
     Indication: DRUG USE FOR UNKNOWN INDICATION
     Dosage: 2 PUFFS PRN
     Route: 048
  14. VITAMIN B12                        /00056201/ [Concomitant]
     Indication: DRUG USE FOR UNKNOWN INDICATION
     Dosage: UNK
     Route: 065
  15. LOVAZA [Concomitant]
     Indication: DRUG USE FOR UNKNOWN INDICATION
     Dosage: DAILY
     Route: 065
  16. OXYGEN [Concomitant]
     Indication: DRUG USE FOR UNKNOWN INDICATION
     Dosage: 1L PER NC
     Route: 065
  17. SPIRIVA [Concomitant]
     Indication: DRUG USE FOR UNKNOWN INDICATION
     Dosage: DAILY
     Route: 065

REACTIONS (4)
  - EPIGLOTTIC CARCINOMA [None]
  - HEAD AND NECK CANCER [None]
  - NECK MASS [None]
  - NICOTINE DEPENDENCE [None]
